FAERS Safety Report 4967502-0 (Version None)
Quarter: 2006Q2

REPORT INFORMATION
  Report Type: 
  Country: None (occurrence: None)
  Receive Date: 20060407
  Receipt Date: 20060407
  Transmission Date: 20061013
  Serious: Yes (Life-Threatening)
  Sender: FDA-Public Use
  Company Number: None

PATIENT
  Age: 56 Year
  Sex: Female
  Weight: 108.8633 kg

DRUGS (1)
  1. CEPHALEXIN [Suspect]
     Indication: BRONCHITIS
     Dosage: 500MG    TWICE A DAY   PO
     Route: 048
     Dates: start: 20060330, end: 20060330

REACTIONS (6)
  - BLOOD PRESSURE ABNORMAL [None]
  - DYSPNOEA [None]
  - PRURITUS GENERALISED [None]
  - SUFFOCATION FEELING [None]
  - THROAT TIGHTNESS [None]
  - URTICARIA [None]
